FAERS Safety Report 6826035-7 (Version None)
Quarter: 2010Q3

REPORT INFORMATION
  Report Type: 
  Country: None (occurrence: None)
  Receive Date: 20100709
  Receipt Date: 20100701
  Transmission Date: 20110219
  Serious: Yes (Other)
  Sender: FDA-Public Use
  Company Number: US-ASTRAZENECA-2007UW25219

PATIENT
  Age: 47 Year
  Sex: Male
  Weight: 95.3 kg

DRUGS (2)
  1. SEROQUEL [Suspect]
     Indication: STRESS
     Dosage: 25MG-200MG
     Route: 048
     Dates: start: 20060108, end: 20060414
  2. SEROQUEL [Suspect]
     Indication: SLEEP DISORDER
     Dosage: 25MG-200MG
     Route: 048
     Dates: start: 20060108, end: 20060414

REACTIONS (7)
  - BLOOD CHOLESTEROL INCREASED [None]
  - DIABETES MELLITUS [None]
  - DIABETIC COMPLICATION [None]
  - DRUG INEFFECTIVE [None]
  - HYPERLIPIDAEMIA [None]
  - NEUROLEPTIC MALIGNANT SYNDROME [None]
  - NEUROPATHY PERIPHERAL [None]
